FAERS Safety Report 17656098 (Version 1)
Quarter: 2020Q2

REPORT INFORMATION
  Report Type: Spontaneous
  Country: US (occurrence: US)
  Receive Date: 20200409
  Receipt Date: 20200409
  Transmission Date: 20200713
  Serious: Yes (Life-Threatening)
  Sender: FDA-Public Use
  Company Number: None

PATIENT
  Age: 55 Year
  Sex: Male

DRUGS (2)
  1. CARVEDILOL (CARVEDILOL 25MG TAB) [Suspect]
     Active Substance: CARVEDILOL
     Indication: HYPERTENSION
     Route: 048
     Dates: start: 20151112, end: 20180510
  2. METOPROLOL (METORPROLOL TARTRATE 25MG TAB) [Suspect]
     Active Substance: METOPROLOL TARTRATE
     Indication: HYPERTENSION
     Route: 048
     Dates: start: 20180515, end: 20180517

REACTIONS (5)
  - Fatigue [None]
  - Dyspnoea [None]
  - Syncope [None]
  - Dizziness [None]
  - Ischaemic stroke [None]

NARRATIVE: CASE EVENT DATE: 20180517
